FAERS Safety Report 4598593-7 (Version None)
Quarter: 2005Q1

REPORT INFORMATION
  Report Type: 
  Country: None (occurrence: None)
  Receive Date: 20050304
  Receipt Date: 20050221
  Transmission Date: 20050727
  Serious: Yes (Other)
  Sender: FDA-Public Use
  Company Number: GB-ROCHE-396274

PATIENT
  Age: 96 Year
  Sex: Female
  Weight: 47.5 kg

DRUGS (9)
  1. TAMIFLU [Suspect]
     Indication: INFLUENZA
     Route: 048
     Dates: start: 20050126, end: 20050204
  2. SENNA [Concomitant]
     Dosage: REPORTED AS 2 X 5ML NOCTE.
     Route: 065
  3. VITAMIN B COMPLEX CAP [Concomitant]
     Dosage: REPORTED AS 1 MANE.
     Route: 065
  4. ASPIRIN [Concomitant]
     Route: 065
  5. BETNOVATE [Concomitant]
     Route: 061
  6. CITALOPRAM [Concomitant]
     Dosage: REPORTED AS 8 DROPS MANE.
     Route: 065
  7. DAKTACORT [Concomitant]
     Route: 061
  8. IRON [Concomitant]
     Dosage: TRADE NAME REPORTED AS PLESMET. REGIMEN REPORTED AS 2 X 5ML TDS.
     Route: 065
  9. PARACETAMOL [Concomitant]
     Dosage: REPORTED AS 2 X 500 MG FOUR TIMES DAILY PRN.
     Route: 065

REACTIONS (5)
  - CHROMATURIA [None]
  - DECREASED APPETITE [None]
  - FEELING ABNORMAL [None]
  - PROTEINURIA [None]
  - URINE ODOUR ABNORMAL [None]
